FAERS Safety Report 15436554 (Version 1)
Quarter: 2018Q3

REPORT INFORMATION
  Report Type: Spontaneous
  Country: US (occurrence: US)
  Receive Date: 20180927
  Receipt Date: 20180927
  Transmission Date: 20181010
  Serious: No
  Sender: FDA-Public Use
  Company Number: US-B.I. PHARMACEUTICALS,INC./RIDGEFIELD-2018-BI-047099

PATIENT
  Age: 81 Year
  Sex: Male

DRUGS (1)
  1. SPIRIVA RESPIMAT [Suspect]
     Active Substance: TIOTROPIUM BROMIDE
     Indication: RESPIRATORY TRACT CONGESTION
     Dosage: 2 SPRAYS Q MORNING;  FORM STRENGTH: 2.5 MCG INHALATION SPRAY? YES ?ACTION(S) TAKEN: DRUG WITHDRAWN
     Route: 055
     Dates: start: 20180824, end: 20180918

REACTIONS (4)
  - Dysuria [Not Recovered/Not Resolved]
  - Chills [Unknown]
  - Dysphonia [Not Recovered/Not Resolved]
  - Dizziness [Not Recovered/Not Resolved]

NARRATIVE: CASE EVENT DATE: 20180831
